FAERS Safety Report 9908477 (Version 1)
Quarter: 2014Q1

REPORT INFORMATION
  Report Type: Spontaneous
  Country: US (occurrence: None)
  Receive Date: 20140212
  Receipt Date: 20140212
  Transmission Date: 20141002
  Serious: Yes (Hospitalization)
  Sender: FDA-Public Use
  Company Number: None

PATIENT
  Age: 34 Year
  Sex: Female
  Weight: 94.7 kg

DRUGS (1)
  1. PENICILLIN [Suspect]
     Route: 048
     Dates: start: 20140131, end: 20140202

REACTIONS (3)
  - Rash [None]
  - Pyrexia [None]
  - Dyspnoea [None]
